FAERS Safety Report 23342784 (Version 2)
Quarter: 2023Q4

REPORT INFORMATION
  Report Type: Spontaneous
  Country: CN (occurrence: CN)
  Receive Date: 20231227
  Receipt Date: 20231228
  Transmission Date: 20240110
  Serious: Yes (Other)
  Sender: FDA-Public Use
  Company Number: CN-SHANGHAI JUNSHI BIOSCIENCES CO., LTD.-CN2023008850

PATIENT

DRUGS (7)
  1. TORIPALIMAB [Suspect]
     Active Substance: TORIPALIMAB
     Indication: Nasopharyngeal cancer
     Dosage: 240 MG
     Route: 041
     Dates: start: 20231110, end: 20231110
  2. TORIPALIMAB [Suspect]
     Active Substance: TORIPALIMAB
     Dosage: UNK
     Route: 041
     Dates: start: 20231204, end: 20231204
  3. GEMCITABINE [Concomitant]
     Active Substance: GEMCITABINE
     Indication: Nasopharyngeal cancer
     Dosage: (D1,D8), EVERY 21 DAYS
     Dates: start: 20231110, end: 20231118
  4. CAPECITABINE [Concomitant]
     Active Substance: CAPECITABINE
     Indication: Nasopharyngeal cancer
     Dosage: 6 CAPSULES/DAY (3 CAPSULES IN THE MORNING AND 3 CAPSULES IN THE EVENING), D1-D14, EVERY 21 DAYS
     Route: 048
     Dates: start: 20231110, end: 20231118
  5. CAPECITABINE [Concomitant]
     Active Substance: CAPECITABINE
     Dosage: 4 CAPSULES PER DAY (2 CAPSULES IN THE MORNING AND 2 CAPSULES IN THE EVENING)
     Route: 048
  6. ESTAZOLAM [Concomitant]
     Active Substance: ESTAZOLAM
     Indication: Insomnia
     Dosage: 0.5 CAPSULES/NIGHT
  7. ESTAZOLAM [Concomitant]
     Active Substance: ESTAZOLAM
     Dosage: EVERY NIGHT, SOMETIMES MORE THAN ONCE, 0.5 OR 1 CAPSULE EACH TIME

REACTIONS (18)
  - Angina pectoris [Unknown]
  - Mouth ulceration [Recovering/Resolving]
  - Dry throat [Unknown]
  - Headache [Unknown]
  - Arthralgia [Unknown]
  - Feeling of body temperature change [Unknown]
  - Cold sweat [Unknown]
  - Taste disorder [Unknown]
  - Chest discomfort [Unknown]
  - Thirst [Unknown]
  - Increased viscosity of bronchial secretion [Unknown]
  - Chest pain [Unknown]
  - Back pain [Not Recovered/Not Resolved]
  - Skin discolouration [Unknown]
  - Heart rate increased [Unknown]
  - Decreased appetite [Unknown]
  - Fatigue [Unknown]
  - Off label use [Unknown]

NARRATIVE: CASE EVENT DATE: 20231110
